FAERS Safety Report 23439861 (Version 5)
Quarter: 2024Q2

REPORT INFORMATION
  Report Type: Spontaneous
  Country: US (occurrence: US)
  Receive Date: 20240124
  Receipt Date: 20240509
  Transmission Date: 20240715
  Serious: No
  Sender: FDA-Public Use
  Company Number: US-BRISTOL-MYERS SQUIBB COMPANY-2024-010628

PATIENT
  Age: 83 Year
  Sex: Female

DRUGS (1)
  1. LENALIDOMIDE [Suspect]
     Active Substance: LENALIDOMIDE
     Indication: Plasma cell myeloma
     Route: 048
     Dates: start: 20231227

REACTIONS (9)
  - Fatigue [Not Recovered/Not Resolved]
  - Malaise [Unknown]
  - Paranasal sinus hypersecretion [Unknown]
  - Memory impairment [Unknown]
  - Balance disorder [Unknown]
  - Asthenia [Unknown]
  - Tremor [Not Recovered/Not Resolved]
  - Off label use [Unknown]
  - Laboratory test abnormal [Unknown]
